FAERS Safety Report 25631091 (Version 1)
Quarter: 2025Q3

REPORT INFORMATION
  Report Type: Report from Study
  Country: PK (occurrence: PK)
  Receive Date: 20250801
  Receipt Date: 20250801
  Transmission Date: 20251020
  Serious: Yes (Death, Hospitalization)
  Sender: ROCHE
  Company Number: PK-ROCHE-10000350618

PATIENT
  Age: 71 Year
  Sex: Female

DRUGS (2)
  1. AVASTIN [Suspect]
     Active Substance: BEVACIZUMAB
     Indication: Hepatocellular carcinoma
     Route: 042
     Dates: start: 20250219, end: 20250716
  2. TECENTRIQ [Suspect]
     Active Substance: ATEZOLIZUMAB
     Indication: Hepatocellular carcinoma
     Route: 042
     Dates: start: 20250219, end: 20250716

REACTIONS (3)
  - Death [Fatal]
  - Hepatic haemorrhage [Unknown]
  - Hepatic infection [Unknown]

NARRATIVE: CASE EVENT DATE: 20250716
